FAERS Safety Report 10472086 (Version 2)
Quarter: 2014Q4

REPORT INFORMATION
  Report Type: Spontaneous
  Country: VE (occurrence: VE)
  Receive Date: 20140924
  Receipt Date: 20141010
  Transmission Date: 20150528
  Serious: Yes (Other)
  Sender: FDA-Public Use
  Company Number: VE-ROCHE-1465928

PATIENT
  Sex: Female

DRUGS (5)
  1. XOLAIR [Suspect]
     Active Substance: OMALIZUMAB
     Indication: PSORIASIS
  2. XOLAIR [Suspect]
     Active Substance: OMALIZUMAB
     Indication: EOSINOPHIL COUNT ABNORMAL
  3. XOLAIR [Suspect]
     Active Substance: OMALIZUMAB
     Indication: BLOOD IMMUNOGLOBULIN E INCREASED
  4. XOLAIR [Suspect]
     Active Substance: OMALIZUMAB
     Indication: PERIVASCULAR DERMATITIS
     Dosage: 4 DF, VIAL
     Route: 058
     Dates: start: 20140923
  5. XOLAIR [Suspect]
     Active Substance: OMALIZUMAB
     Indication: ASTHMA

REACTIONS (10)
  - Asthma [Recovering/Resolving]
  - Urticaria [Recovering/Resolving]
  - Pruritus [Recovering/Resolving]
  - Swelling [Recovering/Resolving]
  - Hypersensitivity [Recovering/Resolving]
  - Conjunctivitis allergic [Recovering/Resolving]
  - Mycosis fungoides [Recovering/Resolving]
  - Dermatitis atopic [Recovering/Resolving]
  - Product use issue [Unknown]
  - Rhinitis allergic [Recovering/Resolving]
